FAERS Safety Report 5747063-9 (Version None)
Quarter: 2008Q2

REPORT INFORMATION
  Report Type: 
  Country: None (occurrence: None)
  Receive Date: 20080522
  Receipt Date: 20080513
  Transmission Date: 20081010
  Serious: Yes (Hospitalization)
  Sender: FDA-Public Use
  Company Number: SI-BOEHRINGER INGELHEIM GMBH, GERMANY-2008-AP-00018AP

PATIENT
  Age: 85 Year
  Sex: Male
  Weight: 83 kg

DRUGS (5)
  1. SPIRIVA [Suspect]
     Indication: CHRONIC OBSTRUCTIVE PULMONARY DISEASE
     Route: 055
     Dates: start: 20071010, end: 20080101
  2. KORNAM [Concomitant]
     Indication: BENIGN PROSTATIC HYPERPLASIA
  3. SERETIDE [Concomitant]
     Indication: CHRONIC OBSTRUCTIVE PULMONARY DISEASE
  4. VENTOLIN [Concomitant]
     Indication: CHRONIC OBSTRUCTIVE PULMONARY DISEASE
     Route: 055
  5. PAROXAT [Concomitant]
     Indication: DEPRESSION

REACTIONS (3)
  - EYELID OEDEMA [None]
  - HYPONATRAEMIA [None]
  - OEDEMA PERIPHERAL [None]
